FAERS Safety Report 4565885-7 (Version None)
Quarter: 2005Q1

REPORT INFORMATION
  Report Type: 
  Country: None (occurrence: None)
  Receive Date: 20050131
  Receipt Date: 20041021
  Transmission Date: 20050727
  Serious: Yes (Hospitalization)
  Sender: FDA-Public Use
  Company Number: GB-AMGEN-UK096472

PATIENT
  Sex: Female
  Weight: 77 kg

DRUGS (8)
  1. KINERET [Suspect]
     Indication: RHEUMATOID ARTHRITIS
     Route: 058
     Dates: start: 20040308
  2. PARACETAMOL [Concomitant]
     Route: 065
  3. THYROXINE [Concomitant]
     Route: 065
  4. ATENOLOL [Concomitant]
     Route: 065
  5. ROFECOXIB [Concomitant]
     Route: 065
  6. ZOPICLONE [Concomitant]
     Route: 065
  7. METHOTREXATE [Concomitant]
     Route: 065
  8. FOLIC ACID [Concomitant]
     Route: 065

REACTIONS (7)
  - BODY FAT DISORDER [None]
  - HYPERTENSION [None]
  - LYMPHADENOPATHY [None]
  - MOUTH ULCERATION [None]
  - PHARYNGOLARYNGEAL PAIN [None]
  - RHEUMATOID ARTHRITIS [None]
  - SECONDARY HYPERTENSION [None]
